FAERS Safety Report 5602659-X (Version None)
Quarter: 2008Q1

REPORT INFORMATION
  Report Type: 
  Country: None (occurrence: None)
  Receive Date: 20080125
  Receipt Date: 20080117
  Transmission Date: 20080703
  Serious: Yes (Death)
  Sender: FDA-Public Use
  Company Number: US-TYCO HEALTHCARE/MALLINCKRODT-T200800058

PATIENT

DRUGS (10)
  1. METHADONE HCL [Suspect]
     Indication: BACK PAIN
     Dosage: 15 MG, BID
     Dates: start: 20060105, end: 20060107
  2. NORCO [Suspect]
     Indication: BACK PAIN
     Dosage: 8 PILLS DAILY, QD
  3. CYMBALTA [Suspect]
     Dosage: 60 MG, QAM
     Route: 048
  4. KLONOPIN [Suspect]
     Dosage: 1 MG, BID
  5. HYDROXYZINE [Suspect]
     Dosage: 100 MG, TID
  6. NORTRIPTYLINE [Suspect]
     Indication: PAIN
     Dosage: 25 TO 50 MG AT SLEEP, QHS
  7. LYRICA [Suspect]
     Dosage: 50 MG, BID
     Route: 048
  8. AMITRIPTYLINE HCL [Suspect]
     Dosage: 2 AT BEDTIME
  9. TRAMADOL HCL [Suspect]
  10. TRAXODONE [Suspect]

REACTIONS (1)
  - DEATH [None]
